FAERS Safety Report 25351437 (Version 4)
Quarter: 2025Q4

REPORT INFORMATION
  Report Type: Spontaneous
  Country: JP (occurrence: JP)
  Receive Date: 20250523
  Receipt Date: 20251013
  Transmission Date: 20260118
  Serious: Yes (Hospitalization, Other)
  Sender: AMGEN
  Company Number: JP-AMGEN-JPNSP2025094966

PATIENT
  Age: 72 Year
  Sex: Female
  Weight: 64.853 kg

DRUGS (17)
  1. EVENITY [Suspect]
     Active Substance: ROMOSOZUMAB-AQQG
     Indication: Osteoporosis
     Dosage: 210 MILLIGRAM
     Route: 058
     Dates: start: 20210208, end: 20220117
  2. EVENITY [Suspect]
     Active Substance: ROMOSOZUMAB-AQQG
     Dosage: 210 MILLIGRAM, QMO
     Route: 058
     Dates: start: 20240910, end: 20250311
  3. MIRABEGRON [Suspect]
     Active Substance: MIRABEGRON
     Indication: Hypertonic bladder
     Dosage: 50 MILLIGRAM, QD
     Route: 065
  4. MINODRONIC ACID [Suspect]
     Active Substance: MINODRONIC ACID
     Indication: Osteoporosis
     Dosage: 50 MILLIGRAM, QMO
     Route: 065
     Dates: start: 202207, end: 202208
  5. MINODRONIC ACID [Suspect]
     Active Substance: MINODRONIC ACID
     Dosage: UNK
     Route: 065
     Dates: start: 202202, end: 202203
  6. EXFORGE [Concomitant]
     Active Substance: AMLODIPINE BESYLATE\VALSARTAN
  7. TRICOR [Concomitant]
     Active Substance: FENOFIBRATE
  8. METGLUCO [Concomitant]
     Active Substance: METFORMIN HYDROCHLORIDE
  9. DAPAGLIFLOZIN [Concomitant]
     Active Substance: DAPAGLIFLOZIN
     Indication: Type 2 diabetes mellitus
     Dosage: 5 MILLIGRAM, QD
  10. NESINA [Concomitant]
     Active Substance: ALOGLIPTIN BENZOATE
  11. LOXOPROFEN [Concomitant]
     Active Substance: LOXOPROFEN
  12. OLOPATADINE [Concomitant]
     Active Substance: OLOPATADINE
  13. RYBELSUS [Concomitant]
     Active Substance: SEMAGLUTIDE
     Indication: Type 2 diabetes mellitus
     Dosage: 7 MILLIGRAM, QD
  14. FENOFIBRATE [Concomitant]
     Active Substance: FENOFIBRATE
     Indication: Hyperlipidaemia
     Dosage: 80 MILLIGRAM, QD
     Route: 065
  15. METFORMIN HYDROCHLORIDE [Concomitant]
     Active Substance: METFORMIN HYDROCHLORIDE
     Indication: Type 2 diabetes mellitus
     Dosage: 500 MILLIGRAM, QD
     Route: 065
  16. ALFACALCIDOL [Concomitant]
     Active Substance: ALFACALCIDOL
     Indication: Osteoporosis
     Dosage: 0.25 MILLIGRAM, QD
     Route: 065
     Dates: start: 20240319, end: 202408
  17. ELDECALCITOL [Concomitant]
     Active Substance: ELDECALCITOL
     Indication: Osteoporosis
     Dosage: UNK
     Route: 065
     Dates: start: 202009, end: 202308

REACTIONS (7)
  - Acute myocardial infarction [Recovered/Resolved]
  - Coronary artery stenosis [Unknown]
  - Coronary artery disease [Recovered/Resolved]
  - Bone density decreased [Unknown]
  - Foot fracture [Unknown]
  - Fall [Recovered/Resolved]
  - Dental care [Recovered/Resolved]

NARRATIVE: CASE EVENT DATE: 20220301
